FAERS Safety Report 16099829 (Version 1)
Quarter: 2019Q1

REPORT INFORMATION
  Report Type: Spontaneous
  Country: IT (occurrence: IT)
  Receive Date: 20190321
  Receipt Date: 20190321
  Transmission Date: 20190418
  Serious: Yes (Other)
  Sender: FDA-Public Use
  Company Number: PHHY2019IT058433

PATIENT
  Age: 53 Year
  Sex: Female

DRUGS (3)
  1. DOXIFLURIDINE [Suspect]
     Active Substance: DOXIFLURIDINE
     Indication: COLON CANCER
     Dosage: 750 MG, CYCLIC
     Route: 042
     Dates: start: 20180116, end: 20180619
  2. OXALIPLATIN. [Suspect]
     Active Substance: OXALIPLATIN
     Indication: COLON CANCER
     Dosage: 120 MG, CYCLIC
     Route: 042
     Dates: start: 20180116, end: 20180619
  3. FLUOROURACIL. [Suspect]
     Active Substance: FLUOROURACIL
     Indication: COLON CANCER
     Dosage: 4500 MG, CYCLIC
     Route: 040
     Dates: start: 20180116, end: 20180619

REACTIONS (1)
  - Neurotoxicity [Recovered/Resolved]

NARRATIVE: CASE EVENT DATE: 20180206
